FAERS Safety Report 24106378 (Version 1)
Quarter: 2024Q3

REPORT INFORMATION
  Report Type: Spontaneous
  Country: US (occurrence: US)
  Receive Date: 20240717
  Receipt Date: 20240717
  Transmission Date: 20241017
  Serious: No
  Sender: Phathom Pharmaceuticals
  Company Number: US-PHATHOM PHARMACEUTICALS INC.-2024PHT00468

PATIENT
  Age: 72 Year
  Sex: Female

DRUGS (13)
  1. VOQUEZNA TRIPLE PAK [Suspect]
     Active Substance: AMOXICILLIN\CLARITHROMYCIN\VONOPRAZAN FUMARATE
     Indication: Helicobacter infection
     Dosage: 20 MG, 1X/DAY
     Route: 048
     Dates: start: 20240612
  2. FERRO BASIC [Concomitant]
     Dosage: UNK
  3. PIOGLITAZONE [Concomitant]
     Active Substance: PIOGLITAZONE
     Dosage: UNK
  4. BUSPIRONE [Concomitant]
     Active Substance: BUSPIRONE HYDROCHLORIDE
     Dosage: UNK
  5. GLIADEL [Concomitant]
     Active Substance: CARMUSTINE
     Dosage: UNK
  6. ATORVASTATIN [Concomitant]
     Active Substance: ATORVASTATIN
     Dosage: UNK
  7. METFORMIN [Concomitant]
     Active Substance: METFORMIN HYDROCHLORIDE
     Dosage: UNK
  8. ASPIRIN [Concomitant]
     Active Substance: ASPIRIN
     Dosage: UNK
  9. LISINOPRIL [Concomitant]
     Active Substance: LISINOPRIL
     Dosage: UNK
  10. METOPROLOL [Concomitant]
     Active Substance: METOPROLOL
     Dosage: UNK
  11. FARXIGA [Concomitant]
     Active Substance: DAPAGLIFLOZIN PROPANEDIOL
     Dosage: UNK
  12. OZEMPIC [Concomitant]
     Active Substance: SEMAGLUTIDE
     Dosage: UNK
  13. GLIMEPIRIDE [Concomitant]
     Active Substance: GLIMEPIRIDE
     Dosage: UNK

REACTIONS (5)
  - Eructation [Unknown]
  - Foreign body in throat [Unknown]
  - Dyspepsia [Unknown]
  - Nausea [Unknown]
  - Dysgeusia [Unknown]

NARRATIVE: CASE EVENT DATE: 20240612
